FAERS Safety Report 8484156-X (Version None)
Quarter: 2012Q3

REPORT INFORMATION
  Report Type: 
  Country: None (occurrence: None)
  Receive Date: 20120703
  Receipt Date: 20120625
  Transmission Date: 20120928
  Serious: Yes (Hospitalization)
  Sender: FDA-Public Use
  Company Number: US-BAYER-2012-064036

PATIENT
  Age: 26 Year
  Sex: Female
  Weight: 86.168 kg

DRUGS (7)
  1. WELLBUTRIN [Concomitant]
     Dosage: 300 MG, DAILY
     Route: 048
  2. YASMIN [Suspect]
  3. WELLBUTRIN [Concomitant]
     Dosage: 150 MG, BID
  4. SYNTHROID [Concomitant]
     Dosage: 100 MCG/24HR, QD
     Route: 048
  5. EFFEXOR [Concomitant]
     Dosage: 300 MG, DAILY
     Route: 048
  6. LEVAQUIN [Concomitant]
     Indication: PNEUMONIA
  7. ZYPREXA [Concomitant]
     Dosage: 10 MG, DAILY
     Route: 048

REACTIONS (1)
  - PULMONARY EMBOLISM [None]
